FAERS Safety Report 9481966 (Version 2)
Quarter: 2013Q4

REPORT INFORMATION
  Report Type: Spontaneous
  Country: US (occurrence: US)
  Receive Date: 20130828
  Receipt Date: 20131002
  Transmission Date: 20140711
  Serious: No
  Sender: FDA-Public Use
  Company Number: US-PFIZER INC-2013246097

PATIENT
  Age: 68 Year
  Sex: Female

DRUGS (1)
  1. ALDACTONE [Suspect]
     Dosage: 25 MG, QD
     Route: 048

REACTIONS (1)
  - Blood magnesium decreased [Unknown]
